FAERS Safety Report 22629349 (Version 1)
Quarter: 2023Q2

REPORT INFORMATION
  Report Type: Spontaneous
  Country: US (occurrence: None)
  Receive Date: 20230619
  Receipt Date: 20230619
  Transmission Date: 20230721
  Serious: Yes (Hospitalization)
  Sender: FDA-Public Use
  Company Number: None

PATIENT
  Sex: Female
  Weight: 127.91 kg

DRUGS (6)
  1. MESNEX [Suspect]
     Active Substance: MESNA
     Indication: Neoplasm malignant
     Dosage: FREQUENCY : AS DIRECTED;?
     Route: 048
  2. GABAPENTIN [Concomitant]
     Active Substance: GABAPENTIN
  3. LORAZEPAM [Concomitant]
     Active Substance: LORAZEPAM
  4. OXYCODONE [Concomitant]
     Active Substance: OXYCODONE
  5. PROCHLORPERAZINE [Concomitant]
     Active Substance: PROCHLORPERAZINE
  6. ZOFRAN [Concomitant]
     Active Substance: ONDANSETRON HYDROCHLORIDE

REACTIONS (1)
  - Sepsis [None]
